FAERS Safety Report 8801756 (Version 5)
Quarter: 2013Q4

REPORT INFORMATION
  Report Type: Report from Study
  Country: CA (occurrence: CA)
  Receive Date: 20120921
  Receipt Date: 20131004
  Transmission Date: 20140711
  Serious: Yes (Hospitalization, Other)
  Sender: FDA-Public Use
  Company Number: CA-ROCHE-1132638

PATIENT
  Age: 62 Year
  Sex: Female

DRUGS (10)
  1. VEMURAFENIB [Suspect]
     Indication: METASTATIC MALIGNANT MELANOMA
     Route: 048
     Dates: start: 201207, end: 2013
  2. RAMIPRIL [Concomitant]
     Route: 065
  3. LIPITOR [Concomitant]
     Route: 065
  4. NOVO-ATENOL [Concomitant]
  5. TRAZODONE [Concomitant]
     Route: 065
  6. ECHINACEA [Concomitant]
     Indication: HYPERTENSION
  7. LORAZEPAM [Concomitant]
     Route: 065
  8. DOCUSATE SODIUM [Concomitant]
     Route: 065
  9. LEVEMIR [Concomitant]
     Dosage: 30-40 UNITS
     Route: 065
  10. LYRICA [Concomitant]
     Route: 065

REACTIONS (20)
  - Hepatic cancer [Not Recovered/Not Resolved]
  - Vomiting [Unknown]
  - Blood glucose increased [Unknown]
  - Furuncle [Recovered/Resolved]
  - Abnormal behaviour [Not Recovered/Not Resolved]
  - Alopecia [Unknown]
  - Erythema [Unknown]
  - Pain in extremity [Unknown]
  - Skin discolouration [Unknown]
  - Ageusia [Not Recovered/Not Resolved]
  - Diarrhoea [Not Recovered/Not Resolved]
  - Rash generalised [Unknown]
  - Hair texture abnormal [Unknown]
  - Gravitational oedema [Unknown]
  - Arthralgia [Unknown]
  - Hypoaesthesia [Unknown]
  - Myalgia [Unknown]
  - Pain [Unknown]
  - Skin disorder [Unknown]
  - Hair colour changes [Unknown]
